FAERS Safety Report 23282169 (Version 1)
Quarter: 2023Q4

REPORT INFORMATION
  Report Type: Spontaneous
  Country: US (occurrence: US)
  Receive Date: 20231211
  Receipt Date: 20231211
  Transmission Date: 20240110
  Serious: No
  Sender: FDA-Public Use
  Company Number: US-SA-SAC20231205000286

PATIENT
  Sex: Female
  Weight: 115.66 kg

DRUGS (4)
  1. DUPIXENT [Suspect]
     Active Substance: DUPILUMAB
     Indication: Asthma
     Dosage: 300 MG, QOW
     Route: 058
  2. DUPIXENT [Suspect]
     Active Substance: DUPILUMAB
     Indication: Nasal polyps
  3. VITAMIN D2 [Concomitant]
     Active Substance: ERGOCALCIFEROL
  4. ORILISSA [Concomitant]
     Active Substance: ELAGOLIX SODIUM

REACTIONS (4)
  - Eczema [Unknown]
  - Rash [Unknown]
  - Skin discolouration [Unknown]
  - Therapeutic response shortened [Unknown]
